FAERS Safety Report 18890261 (Version 1)
Quarter: 2021Q1

REPORT INFORMATION
  Report Type: Spontaneous
  Country: US (occurrence: US)
  Receive Date: 20210214
  Receipt Date: 20210214
  Transmission Date: 20210420
  Serious: No
  Sender: FDA-Public Use
  Company Number: US-009507513-2101USA009854

PATIENT
  Sex: Female

DRUGS (1)
  1. NEXPLANON [Suspect]
     Active Substance: ETONOGESTREL
     Dosage: 68MG/ONCE
     Route: 059
     Dates: start: 2018

REACTIONS (3)
  - Complication of device removal [Unknown]
  - Incorrect product administration duration [Unknown]
  - Complication associated with device [Unknown]

NARRATIVE: CASE EVENT DATE: 2021
